FAERS Safety Report 23853595 (Version 1)
Quarter: 2024Q2

REPORT INFORMATION
  Report Type: Spontaneous
  Country: DE (occurrence: DE)
  Receive Date: 20240514
  Receipt Date: 20240514
  Transmission Date: 20240715
  Serious: Yes (Other)
  Sender: FDA-Public Use
  Company Number: DE-BoehringerIngelheim-2024-BI-027131

PATIENT
  Age: 36 Year
  Sex: Female

DRUGS (15)
  1. JARDIANCE [Suspect]
     Active Substance: EMPAGLIFLOZIN
     Indication: Type 2 diabetes mellitus
     Dosage: FORM STRENGTH: 10 MILLIGRAM
     Dates: start: 202011, end: 202111
  2. JARDIANCE [Suspect]
     Active Substance: EMPAGLIFLOZIN
     Dosage: FORM STRENGTH: 25 MILLIGRAM
     Dates: start: 202111, end: 202212
  3. HUMALOG [Concomitant]
     Active Substance: INSULIN LISPRO
     Indication: Type 2 diabetes mellitus
     Dosage: THERAPY BY CARBOHYDRATE COUNTING FACTOR
     Dates: start: 202011, end: 202111
  4. HUMALOG [Concomitant]
     Active Substance: INSULIN LISPRO
     Dosage: INTENSIFIED CONVENTIONAL INSULIN THERAPY WITH HUMALOG 200 (ADDITIONAL PRE BOLUS IF REQUIRED AT 5 P.M
     Dates: start: 202111
  5. HUMALOG [Concomitant]
     Active Substance: INSULIN LISPRO
     Dosage: INTENSIFIED CONVENTIONAL INSULIN THERAPY WITH HUMALOG 200 (8-4-6) INJECTION UNITS
     Dates: start: 202008
  6. TOUJEO [Concomitant]
     Active Substance: INSULIN GLARGINE
     Indication: Type 2 diabetes mellitus
     Dosage: 24 INJECTION UNITS
     Dates: start: 202011
  7. TOUJEO [Concomitant]
     Active Substance: INSULIN GLARGINE
     Dosage: TOUJEO 300 10 INJECTION UNITS
     Dates: start: 202007
  8. TOUJEO [Concomitant]
     Active Substance: INSULIN GLARGINE
     Dosage: 16 INJECTION UNITS
     Dates: start: 202008
  9. OZEMPIC [Concomitant]
     Active Substance: SEMAGLUTIDE
     Indication: Type 2 diabetes mellitus
     Dosage: 0.5 MG WEEKLY
     Dates: start: 202011, end: 202111
  10. VICTOZA [Concomitant]
     Active Substance: LIRAGLUTIDE
     Indication: Type 2 diabetes mellitus
     Dates: start: 202111
  11. VICTOZA [Concomitant]
     Active Substance: LIRAGLUTIDE
     Dates: start: 201805
  12. VICTOZA [Concomitant]
     Active Substance: LIRAGLUTIDE
     Dates: start: 202007
  13. Tresiba 200 [Concomitant]
     Indication: Type 2 diabetes mellitus
     Dosage: 28 INJECTION UNITS
     Dates: start: 202011, end: 202111
  14. PROTAPHANE [Concomitant]
     Active Substance: INSULIN HUMAN
     Indication: Type 2 diabetes mellitus
     Dosage: 8 INJECTION UNITS
     Dates: start: 202203, end: 202212
  15. PROTAPHANE [Concomitant]
     Active Substance: INSULIN HUMAN
     Dosage: 20 INJECTION UNITS
     Dates: start: 202212

REACTIONS (4)
  - Mental disorder [Unknown]
  - Abscess [Unknown]
  - Smear cervix abnormal [Unknown]
  - Nausea [Unknown]

NARRATIVE: CASE EVENT DATE: 20221201
